FAERS Safety Report 8455292 (Version 2)
Quarter: 2013Q3

REPORT INFORMATION
  Report Type: Spontaneous
  Country: US (occurrence: US)
  Receive Date: 20120313
  Receipt Date: 20130729
  Transmission Date: 20140515
  Serious: No
  Sender: FDA-Public Use
  Company Number: US-PFIZER INC-2012061336

PATIENT
  Age: 63 Year
  Sex: Female
  Weight: 83.9 kg

DRUGS (8)
  1. REVATIO [Suspect]
     Indication: PULMONARY HYPERTENSION
     Dosage: 20 MG, 3X/DAY
     Route: 048
  2. REVATIO [Suspect]
     Indication: PULMONARY ARTERIAL HYPERTENSION
  3. LANTUS [Concomitant]
     Indication: DIABETES MELLITUS
     Dosage: 45 UNITS, DAILY
  4. BYETTA [Concomitant]
     Indication: DIABETES MELLITUS
     Dosage: 10 IU, 2X/DAY
  5. HUMALOG [Concomitant]
     Indication: DIABETES MELLITUS
     Dosage: 3X/DAY
  6. GLUCOPHAGE [Concomitant]
     Indication: DIABETES MELLITUS
     Dosage: 1000 MG, 2X/DAY
  7. METOPROLOL [Concomitant]
     Indication: HYPERTENSION
     Dosage: 50 MG, 2X/DAY
  8. LASIX [Concomitant]
     Indication: PULMONARY HYPERTENSION
     Dosage: 40 MG, 2X/DAY

REACTIONS (4)
  - Insomnia [Unknown]
  - Lacrimation increased [Unknown]
  - Dyspnoea [Not Recovered/Not Resolved]
  - Nasal congestion [Not Recovered/Not Resolved]
